FAERS Safety Report 21714532 (Version 1)
Quarter: 2022Q4

REPORT INFORMATION
  Report Type: Spontaneous
  Country: US (occurrence: None)
  Receive Date: 20221209
  Receipt Date: 20221209
  Transmission Date: 20230113
  Serious: Yes (Other)
  Sender: FDA-Public Use
  Company Number: None

PATIENT
  Age: 59 Year
  Sex: Male
  Weight: 58.95 kg

DRUGS (8)
  1. CANAGLIFLOZIN [Suspect]
     Active Substance: CANAGLIFLOZIN
     Indication: Type 2 diabetes mellitus
     Dosage: FREQUENCY : DAILY;?
     Route: 048
     Dates: start: 20200326, end: 20201107
  2. ASPIRIN [Concomitant]
     Active Substance: ASPIRIN
     Dates: start: 20190107
  3. Glyburide- Metformin 5- 500 mg 2 tablets two times daily [Concomitant]
     Dates: start: 20200326
  4. Januvia 100 mg daily [Concomitant]
     Dates: start: 20200326
  5. LISINOPRIL [Concomitant]
     Active Substance: LISINOPRIL
     Dates: start: 20200611
  6. Protonix DR 20 mg daily [Concomitant]
     Dates: start: 20200702
  7. Simvastatin 20 mg daily [Concomitant]
     Dates: start: 20200611
  8. vitamin d3 2000 units daily [Concomitant]
     Dates: start: 20190107

REACTIONS (1)
  - Blood potassium increased [None]

NARRATIVE: CASE EVENT DATE: 20201021
